FAERS Safety Report 8838490 (Version 4)
Quarter: 2013Q1

REPORT INFORMATION
  Report Type: Report from Study
  Country: DE (occurrence: DE)
  Receive Date: 20121012
  Receipt Date: 20130225
  Transmission Date: 20140127
  Serious: Yes (Hospitalization)
  Sender: FDA-Public Use
  Company Number: DE-ROCHE-1142828

PATIENT
  Age: 45 Year
  Sex: Male
  Weight: 121.7 kg

DRUGS (4)
  1. VEMURAFENIB [Suspect]
     Indication: METASTATIC MALIGNANT MELANOMA
     Dosage: LAST DOSE PROIR TO SAE- 3/OCT/2012
     Route: 048
     Dates: start: 20120118
  2. ADVANTAN [Concomitant]
     Dosage: 1/APPLICATION
     Route: 065
     Dates: start: 20120209
  3. SALICYLVASELIN 2% [Concomitant]
     Dosage: 2 AAPLICATIONS PER DAY
     Route: 065
     Dates: start: 20120314
  4. IBUPROFEN [Concomitant]
     Dosage: AS NEEDED/MG
     Route: 065
     Dates: start: 20120805

REACTIONS (1)
  - Dermal cyst [Recovered/Resolved]
